FAERS Safety Report 18955061 (Version 2)
Quarter: 2021Q1

REPORT INFORMATION
  Report Type: Spontaneous
  Country: ES (occurrence: ES)
  Receive Date: 20210301
  Receipt Date: 20210302
  Transmission Date: 20210420
  Serious: Yes (Hospitalization, Other)
  Sender: FDA-Public Use
  Company Number: NVSC2021ES047274

PATIENT
  Age: 89 Year
  Sex: Female

DRUGS (2)
  1. OMEPRAZOLE. [Suspect]
     Active Substance: OMEPRAZOLE
     Indication: PRODUCT USED FOR UNKNOWN INDICATION
     Dosage: FOR MORE THAN 10 YEARS
     Route: 065
  2. ASPIRIN. [Interacting]
     Active Substance: ASPIRIN
     Indication: PRODUCT USED FOR UNKNOWN INDICATION
     Dosage: FOR MORE THAN 10 YEARS
     Route: 065

REACTIONS (7)
  - Gastrointestinal disorder [Recovered/Resolved]
  - Intestinal fistula [Recovered/Resolved]
  - Small intestinal obstruction [Recovered/Resolved]
  - Gastrointestinal neoplasm [Recovered/Resolved]
  - Intestinal ulcer [Recovered/Resolved]
  - Drug interaction [Recovered/Resolved]
  - Intestinal perforation [Recovered/Resolved]
